FAERS Safety Report 21786177 (Version 1)
Quarter: 2022Q4

REPORT INFORMATION
  Report Type: Other
  Country: US (occurrence: None)
  Receive Date: 20221228
  Receipt Date: 20221228
  Transmission Date: 20230112
  Serious: Yes (Other)
  Sender: FDA-Public Use
  Company Number: US-Saptalis Pharmaceuticals,LLC-000325

PATIENT
  Age: 81 Year
  Sex: Female

DRUGS (15)
  1. TRIAMCINOLONE [Suspect]
     Active Substance: TRIAMCINOLONE
     Indication: Necrotising scleritis
     Dosage: SUBCONJUNCTIVAL INJECTIONS OF TRIAMCINOLONE SIX WEEKS AND TEN WEEKS
  2. TOBRAMYCIN [Suspect]
     Active Substance: TOBRAMYCIN
     Indication: Necrotising scleritis
     Dosage: HOURLY
  3. CEFTAZIDIME [Suspect]
     Active Substance: CEFTAZIDIME
     Indication: Necrotising scleritis
     Dosage: HOURLY
  4. DIFLUPREDNATE [Suspect]
     Active Substance: DIFLUPREDNATE
     Indication: Necrotising scleritis
     Dosage: DIFLUPREDNATE FOUR TIMES A DAY
  5. CIPROFLOXACIN [Suspect]
     Active Substance: CIPROFLOXACIN
     Indication: Necrotising scleritis
     Dosage: 500 MG TWICE DAILY
     Route: 048
  6. VANCOMYCIN [Suspect]
     Active Substance: VANCOMYCIN
     Indication: Cellulitis
     Dosage: INTRAVENOUS VANCOMYCIN
     Route: 042
  7. PREDNISOLONE [Suspect]
     Active Substance: PREDNISOLONE
     Indication: Necrotising scleritis
     Dosage: 1% TWICE A DAY
  8. CEFEPIME [Suspect]
     Active Substance: CEFEPIME HYDROCHLORIDE
     Indication: Cellulitis
     Dosage: CEFEPIME FOR THREE DAYS
  9. ATROPINE [Concomitant]
     Active Substance: ATROPINE
     Indication: Necrotising scleritis
     Dosage: TOPICAL ATROPINE 1% DAILY
  10. DORZOLAMIDE HYDROCHLORIDE\TIMOLOL MALEATE [Concomitant]
     Active Substance: DORZOLAMIDE HYDROCHLORIDE\TIMOLOL MALEATE
     Indication: Intraocular pressure test
  11. TRIAMCINOLONE [Suspect]
     Active Substance: TRIAMCINOLONE
     Indication: Necrotising scleritis
     Dosage: 0.25 ML OF 40 MG/ML EACH
  12. TOBRAMYCIN [Suspect]
     Active Substance: TOBRAMYCIN
     Indication: Ulcerative keratitis
     Dosage: EYEDROPS ALTERNATING EVERY HOUR
  13. VANCOMYCIN [Suspect]
     Active Substance: VANCOMYCIN
     Indication: Ulcerative keratitis
     Dosage: VANCOMYCIN EYEDROPS ALTERNATING EVERY HOUR
  14. TRIAMCINOLONE [Suspect]
     Active Substance: TRIAMCINOLONE
     Indication: Corneal defect
     Dosage: 0.25 ML OF 40 MG/ML EACH
  15. TRIAMCINOLONE [Suspect]
     Active Substance: TRIAMCINOLONE
     Indication: Corneal defect
     Dosage: SUBCONJUNCTIVAL INJECTIONS OF TRIAMCINOLONE SIX WEEKS AND TEN WEEKS

REACTIONS (1)
  - Scleromalacia [Not Recovered/Not Resolved]
